FAERS Safety Report 4973395-8 (Version None)
Quarter: 2006Q2

REPORT INFORMATION
  Report Type: 
  Country: None (occurrence: None)
  Receive Date: 20060414
  Receipt Date: 20050909
  Transmission Date: 20061013
  Serious: Yes (Hospitalization)
  Sender: FDA-Public Use
  Company Number: US-MERCK-0509USA01444

PATIENT
  Age: 58 Year
  Sex: Male
  Weight: 75 kg

DRUGS (24)
  1. SPORANOX [Concomitant]
     Route: 065
  2. PLAVIX [Concomitant]
     Route: 065
  3. NITROGLYCERIN [Concomitant]
     Route: 065
  4. LASIX [Concomitant]
     Route: 065
  5. FLONASE [Concomitant]
     Route: 065
  6. OMNICEF [Concomitant]
     Route: 065
  7. VIOXX [Suspect]
     Indication: BACK PAIN
     Route: 048
     Dates: start: 19990101, end: 20040901
  8. VIOXX [Suspect]
     Indication: INFLAMMATION
     Route: 048
     Dates: start: 19990101, end: 20040901
  9. PRILOSEC [Concomitant]
     Route: 065
  10. CLARITIN [Concomitant]
     Route: 065
  11. LIPITOR [Concomitant]
     Route: 065
  12. LAMISIL [Concomitant]
     Route: 065
  13. BIAXIN [Concomitant]
     Route: 065
  14. FOLTX [Concomitant]
     Route: 065
  15. METOPROLOL [Concomitant]
     Route: 065
  16. DARVOCET [Concomitant]
     Route: 065
  17. NIASPAN [Concomitant]
     Route: 065
  18. PERIDEX [Concomitant]
     Route: 065
  19. TRAMADOL HYDROCHLORIDE [Concomitant]
     Route: 065
  20. FOLBEE [Concomitant]
     Route: 065
  21. DYNABAC [Concomitant]
     Route: 065
  22. ZITHROMAX [Concomitant]
     Route: 065
  23. AUGMENTIN '125' [Concomitant]
     Route: 065
  24. SELDANE [Concomitant]
     Route: 065

REACTIONS (19)
  - ACTINIC KERATOSIS [None]
  - ALCOHOL USE [None]
  - ARTERIOSCLEROSIS CORONARY ARTERY [None]
  - BRADYCARDIA [None]
  - CHEST PAIN [None]
  - CORONARY ARTERY DISEASE [None]
  - CORONARY ARTERY OCCLUSION [None]
  - CORONARY ARTERY STENOSIS [None]
  - DIVERTICULUM [None]
  - DYSPEPSIA [None]
  - DYSPNOEA [None]
  - ELECTROCARDIOGRAM ST-T CHANGE [None]
  - GASTROOESOPHAGEAL REFLUX DISEASE [None]
  - HYPERLIPIDAEMIA [None]
  - HYPERTENSION [None]
  - HYPOTENSION [None]
  - MYOCARDIAL INFARCTION [None]
  - SUPRAVENTRICULAR TACHYCARDIA [None]
  - UPPER RESPIRATORY TRACT INFECTION [None]
